FAERS Safety Report 16343423 (Version 1)
Quarter: 2019Q2

REPORT INFORMATION
  Report Type: Spontaneous
  Country: US (occurrence: US)
  Receive Date: 20190522
  Receipt Date: 20190522
  Transmission Date: 20190711
  Serious: No
  Sender: FDA-Public Use
  Company Number: US-GILEAD-2019-0409329

PATIENT
  Age: 65 Year
  Sex: Female

DRUGS (1)
  1. EPCLUSA [Suspect]
     Active Substance: SOFOSBUVIR\VELPATASVIR
     Indication: PRODUCT USED FOR UNKNOWN INDICATION
     Route: 048

REACTIONS (2)
  - Circumstance or information capable of leading to medication error [Not Recovered/Not Resolved]
  - Dysphagia [Not Recovered/Not Resolved]
